FAERS Safety Report 17745237 (Version 1)
Quarter: 2020Q2

REPORT INFORMATION
  Report Type: Spontaneous
  Country: US (occurrence: US)
  Receive Date: 20200505
  Receipt Date: 20200505
  Transmission Date: 20200714
  Serious: Yes (Other)
  Sender: FDA-Public Use
  Company Number: US-STRIDES ARCOLAB LIMITED-2020SP005405

PATIENT
  Age: 19 Year
  Sex: Male

DRUGS (4)
  1. MEMANTINE HYDROCHLORIDE. [Suspect]
     Active Substance: MEMANTINE HYDROCHLORIDE
     Indication: CATATONIA
     Dosage: UNK
     Route: 065
  2. LORAZEPAM. [Concomitant]
     Active Substance: LORAZEPAM
     Dosage: 3.5 MILLIGRAM
     Route: 065
  3. LORAZEPAM. [Concomitant]
     Active Substance: LORAZEPAM
     Indication: CATATONIA
     Dosage: TITRATED TO A MAXIMUM DOSE OF 20 MG/DAY
     Route: 065
  4. LORAZEPAM. [Concomitant]
     Active Substance: LORAZEPAM
     Dosage: 4.5 MILLIGRAM, PRN, PARENTS INCREASE IF SYMPTOMS INCREASE
     Route: 065

REACTIONS (3)
  - Catatonia [Unknown]
  - Off label use [Unknown]
  - Condition aggravated [Unknown]
